FAERS Safety Report 8771503 (Version 3)
Quarter: 2012Q4

REPORT INFORMATION
  Report Type: 
  Country: JP (occurrence: JP)
  Receive Date: 20120906
  Receipt Date: 20121126
  Transmission Date: 20130627
  Serious: Yes (Disabling)
  Sender: FDA-Public Use
  Company Number: JP-GLAXOSMITHKLINE-B0828386A

PATIENT
  Age: 50 Year
  Sex: Female
  Weight: 49 kg

DRUGS (4)
  1. HYCAMTIN [Suspect]
     Indication: OVARIAN CANCER RECURRENT
     Dosage: 1MGM2 per day
     Route: 042
     Dates: start: 20120206, end: 20120210
  2. HYCAMTIN [Suspect]
     Indication: OVARIAN CANCER RECURRENT
     Dosage: 1.2MGM2 per day
     Route: 042
     Dates: start: 20120426, end: 20120430
  3. LIPITOR [Concomitant]
     Indication: HYPERLIPIDAEMIA
  4. WARFARIN [Concomitant]
     Indication: VENOUS THROMBOSIS
     Dosage: 3MG per day
     Route: 048

REACTIONS (3)
  - Nausea [Recovering/Resolving]
  - Decreased appetite [Recovering/Resolving]
  - Cough [Unknown]
